FAERS Safety Report 8579129-2 (Version None)
Quarter: 2012Q3

REPORT INFORMATION
  Report Type: 
  Country: None (occurrence: None)
  Receive Date: 20120726
  Receipt Date: 20120719
  Transmission Date: 20120928
  Serious: Yes (Death)
  Sender: FDA-Public Use
  Company Number: JP-2012-15854

PATIENT
  Age: 73 Year
  Sex: Male

DRUGS (6)
  1. SAMSCA [Suspect]
     Dosage: 15;3.75 MG, QD, ORAL
     Route: 048
     Dates: start: 20120710
  2. SAMSCA [Suspect]
     Dosage: 15;3.75 MG, QD, ORAL
     Route: 048
     Dates: end: 20120709
  3. LASIX [Concomitant]
  4. SYMBICORT [Concomitant]
  5. SPIRIVA [Concomitant]
  6. THEODUR (THEOPHYLINE) [Concomitant]

REACTIONS (2)
  - PULMONARY HYPERTENSION [None]
  - CHRONIC OBSTRUCTIVE PULMONARY DISEASE [None]
